FAERS Safety Report 10790391 (Version 2)
Quarter: 2015Q1

REPORT INFORMATION
  Report Type: Spontaneous
  Country: DE (occurrence: DE)
  Receive Date: 20150212
  Receipt Date: 20150220
  Transmission Date: 20150721
  Serious: Yes (Other)
  Sender: FDA-Public Use
  Company Number: DE-TEVA-538941GER

PATIENT
  Age: 22 Year
  Sex: Female
  Weight: 72 kg

DRUGS (4)
  1. TRISENOX [Suspect]
     Active Substance: ARSENIC TRIOXIDE
     Indication: ACUTE PROMYELOCYTIC LEUKAEMIA
     Dosage: 10 MILLIGRAM DAILY;
     Route: 042
     Dates: start: 20150126, end: 20150130
  2. CIPROFLOXAZIN [Concomitant]
  3. VESANOID [Suspect]
     Active Substance: TRETINOIN
     Indication: ACUTE PROMYELOCYTIC LEUKAEMIA
     Dosage: 90 MILLIGRAM DAILY;
     Route: 048
     Dates: start: 20150126, end: 20150211
  4. RONIDAZOL [Concomitant]

REACTIONS (9)
  - Hepatotoxicity [Not Recovered/Not Resolved]
  - Blood alkaline phosphatase increased [Not Recovered/Not Resolved]
  - Alanine aminotransferase increased [Not Recovered/Not Resolved]
  - White blood cell count decreased [None]
  - Prothrombin time shortened [None]
  - Blood lactate dehydrogenase increased [None]
  - Aspartate aminotransferase increased [Not Recovered/Not Resolved]
  - Gamma-glutamyltransferase increased [Not Recovered/Not Resolved]
  - White blood cell count increased [None]

NARRATIVE: CASE EVENT DATE: 20150130
